FAERS Safety Report 8765167 (Version 1)
Quarter: 2012Q4

REPORT INFORMATION
  Report Type: 
  Country: US (occurrence: US)
  Receive Date: 20120903
  Receipt Date: 20120903
  Transmission Date: 20130627
  Serious: Yes (Life-Threatening)
  Sender: FDA-Public Use
  Company Number: US-009507513-1208USA010539

PATIENT

DRUGS (3)
  1. TEMODAR [Suspect]
     Indication: GLIOBLASTOMA
     Dosage: 50 mg/m2, qd
     Route: 048
  2. VORINOSTAT [Suspect]
     Indication: GLIOBLASTOMA
     Dosage: 400 mg, UNK
     Route: 048
  3. BEVACIZUMAB [Suspect]
     Indication: GLIOBLASTOMA
     Dosage: 10 mg/kg, qow
     Route: 042

REACTIONS (4)
  - Hyperglycaemia [Unknown]
  - Pulmonary embolism [Unknown]
  - Intestinal perforation [Unknown]
  - Intracranial haematoma [Unknown]
